FAERS Safety Report 6132129-4 (Version None)
Quarter: 2009Q1

REPORT INFORMATION
  Report Type: 
  Country: None (occurrence: None)
  Receive Date: 20090325
  Receipt Date: 20090320
  Transmission Date: 20090719
  Serious: Yes (Hospitalization)
  Sender: FDA-Public Use
  Company Number: A0774934A

PATIENT
  Age: 67 Year
  Sex: Female
  Weight: 55 kg

DRUGS (5)
  1. SERETIDE [Suspect]
     Indication: ASTHMA
     Dosage: 1PUFF TWICE PER DAY
     Dates: start: 20090211, end: 20090216
  2. BUDECORT [Concomitant]
     Dosage: 2PUFF TWICE PER DAY
  3. ACEBROPHYLLINE [Concomitant]
     Dates: start: 20090211
  4. LEVOFLOXACIN [Concomitant]
     Dates: start: 20090211
  5. DEFLAZACORT [Concomitant]
     Dates: start: 20090211

REACTIONS (5)
  - HEADACHE [None]
  - PAIN [None]
  - PRODUCT QUALITY ISSUE [None]
  - THROMBOCYTOPENIA [None]
  - VOMITING [None]
